FAERS Safety Report 4865158-9 (Version None)
Quarter: 2005Q4

REPORT INFORMATION
  Report Type: 
  Country: None (occurrence: None)
  Receive Date: 20051223
  Receipt Date: 20050628
  Transmission Date: 20060501
  Serious: Yes (Hospitalization)
  Sender: FDA-Public Use
  Company Number: 200515475US

PATIENT
  Sex: Male
  Weight: 78.5 kg

DRUGS (9)
  1. KETEK [Suspect]
     Indication: SINUSITIS
     Route: 048
     Dates: start: 20050615, end: 20050618
  2. LIPITOR [Suspect]
     Indication: HYPERCHOLESTEROLAEMIA
     Route: 048
     Dates: end: 20050618
  3. LIPITOR [Suspect]
     Route: 048
     Dates: start: 20050623
  4. NPH INSULIN [Concomitant]
     Indication: DIABETES MELLITUS
     Dosage: DOSE UNIT: UNITS
  5. REGULAR INSULIN [Concomitant]
     Indication: DIABETES MELLITUS
     Dosage: DOSE UNIT: UNITS
  6. ATENOLOL [Concomitant]
  7. FLONASE [Concomitant]
     Indication: SINUSITIS
     Dosage: DOSE: NOT PROVIDED
     Dates: start: 20050615
  8. ALLEGRA [Concomitant]
     Indication: SINUSITIS
     Route: 048
     Dates: start: 20050615
  9. FLOMAX [Concomitant]
     Indication: PROSTATITIS

REACTIONS (9)
  - DIZZINESS [None]
  - DRUG INTERACTION [None]
  - DYSPNOEA [None]
  - ELECTROCARDIOGRAM CHANGE [None]
  - FLUSHING [None]
  - HYPERGLYCAEMIA [None]
  - HYPERHIDROSIS [None]
  - HYPERKALAEMIA [None]
  - MUSCLE SPASMS [None]
